FAERS Safety Report 4927860-X (Version None)
Quarter: 2006Q1

REPORT INFORMATION
  Report Type: 
  Country: None (occurrence: None)
  Receive Date: 20060228
  Receipt Date: 20060223
  Transmission Date: 20060701
  Serious: Yes (Other)
  Sender: FDA-Public Use
  Company Number: US-GLAXOSMITHKLINE-A0594954A

PATIENT
  Age: 58 Year
  Sex: Male

DRUGS (4)
  1. PAXIL [Suspect]
     Indication: DEPRESSION
     Route: 065
     Dates: start: 20060209, end: 20060213
  2. WELLBUTRIN [Suspect]
     Indication: DEPRESSION
     Dosage: 150MG PER DAY
     Route: 048
     Dates: start: 20060220
  3. PROZAC [Suspect]
     Dates: start: 20050214, end: 20050219
  4. NO CONCURRENT MEDICATION [Concomitant]

REACTIONS (5)
  - AGITATION [None]
  - EXTRAPYRAMIDAL DISORDER [None]
  - RESPIRATION ABNORMAL [None]
  - SEXUAL DYSFUNCTION [None]
  - THINKING ABNORMAL [None]
